FAERS Safety Report 5982108-2 (Version None)
Quarter: 2008Q4

REPORT INFORMATION
  Report Type: 
  Country: None (occurrence: None)
  Receive Date: 20081202
  Receipt Date: 20081117
  Transmission Date: 20090506
  Serious: Yes (Hospitalization)
  Sender: FDA-Public Use
  Company Number: 1000001815

PATIENT
  Age: 89 Year
  Sex: Female

DRUGS (6)
  1. ESCITALOPRAM [Suspect]
     Indication: DEPRESSION
     Dosage: ORAL
     Route: 048
     Dates: end: 20080307
  2. PREVISCAN [Concomitant]
  3. LASIX [Concomitant]
  4. OLMETEC [Concomitant]
  5. ACETAMINOPHEN AND CODEINE PHOSPHATE [Concomitant]
  6. MYORELAXING AGENTS (NOS) [Concomitant]

REACTIONS (3)
  - HYPONATRAEMIA [None]
  - SCIATICA [None]
  - URINARY TRACT INFECTION ENTEROCOCCAL [None]
